FAERS Safety Report 10068461 (Version 2)
Quarter: 2014Q2

REPORT INFORMATION
  Report Type: Spontaneous
  Country: ZA (occurrence: ZA)
  Receive Date: 20140409
  Receipt Date: 20140409
  Transmission Date: 20141212
  Serious: Yes (Life-Threatening, Hospitalization)
  Sender: FDA-Public Use
  Company Number: ZA-ABBVIE-13A-143-1070053-00

PATIENT
  Age: 71 Month
  Sex: Female

DRUGS (11)
  1. CLARITHROMYCIN [Suspect]
     Indication: PRODUCT USED FOR UNKNOWN INDICATION
  2. MOXIFLOXACIN [Suspect]
     Indication: PRODUCT USED FOR UNKNOWN INDICATION
  3. LINEZOLID [Suspect]
     Indication: PRODUCT USED FOR UNKNOWN INDICATION
  4. CAPREOMYCIN [Suspect]
     Indication: PRODUCT USED FOR UNKNOWN INDICATION
  5. AMINOSALICYLIC ACID [Suspect]
     Indication: PRODUCT USED FOR UNKNOWN INDICATION
  6. AMOXICILLIN/CLAVULANIC ACID [Suspect]
     Indication: PRODUCT USED FOR UNKNOWN INDICATION
  7. TERIZIDONE [Suspect]
     Indication: PRODUCT USED FOR UNKNOWN INDICATION
  8. CLOFAZIMINE [Suspect]
     Indication: PRODUCT USED FOR UNKNOWN INDICATION
  9. ABACAVIR [Suspect]
     Indication: PRODUCT USED FOR UNKNOWN INDICATION
  10. LAMIVUDINE [Suspect]
     Indication: PRODUCT USED FOR UNKNOWN INDICATION
  11. PYRIDOXINE [Concomitant]
     Indication: PRODUCT USED FOR UNKNOWN INDICATION

REACTIONS (2)
  - Pancreatitis [Recovered/Resolved]
  - Lactic acidosis [Recovered/Resolved]
